FAERS Safety Report 4426350-0 (Version None)
Quarter: 2004Q3

REPORT INFORMATION
  Report Type: 
  Country: None (occurrence: None)
  Receive Date: 20040810
  Receipt Date: 20040730
  Transmission Date: 20050211
  Serious: Yes (Death, Hospitalization)
  Sender: FDA-Public Use
  Company Number: BRO-006321

PATIENT
  Age: 67 Year
  Sex: Female

DRUGS (7)
  1. IOPAMIDOL [Suspect]
     Indication: ANGIOGRAM
     Dosage: 80 ML,
     Route: 013
     Dates: start: 20030415, end: 20030415
  2. METAMIZOLE SODIUM [Suspect]
     Indication: INTRACRANIAL ANEURYSM
     Route: 030
     Dates: start: 20030416, end: 20030416
  3. METILON SODIUM / METILON (BATCH # (S): UNK) [Suspect]
     Indication: PYREXIA
  4. SELBEX (TEPRENONE) [Concomitant]
  5. PERDIPINA, (NICARDIPINE HYDROCHLORIDE) [Concomitant]
  6. PRAVASTATIN [Concomitant]
  7. NEUQUINON, (UBIDECARENONE) [Concomitant]

REACTIONS (15)
  - ALANINE AMINOTRANSFERASE INCREASED [None]
  - ANAPHYLACTOID SHOCK [None]
  - ASPARTATE AMINOTRANSFERASE INCREASED [None]
  - BLOOD CULTURE POSITIVE [None]
  - CITROBACTER INFECTION [None]
  - CYANOSIS [None]
  - DISSEMINATED INTRAVASCULAR COAGULATION [None]
  - HAEMODIALYSIS [None]
  - MULTI-ORGAN FAILURE [None]
  - POST PROCEDURAL COMPLICATION [None]
  - PROTEIN TOTAL DECREASED [None]
  - PYREXIA [None]
  - RENAL FAILURE ACUTE [None]
  - SEPSIS [None]
  - TYPE IV HYPERSENSITIVITY REACTION [None]
